FAERS Safety Report 6699297-7 (Version None)
Quarter: 2010Q2

REPORT INFORMATION
  Report Type: 
  Country: None (occurrence: None)
  Receive Date: 20100427
  Receipt Date: 20100422
  Transmission Date: 20101027
  Serious: Yes (Death, Other)
  Sender: FDA-Public Use
  Company Number: JP-CELGENEUS-087-20785-10041899

PATIENT
  Age: 39 Year
  Sex: Male

DRUGS (1)
  1. THALIDOMIDE [Suspect]
     Route: 048
     Dates: start: 20080101

REACTIONS (3)
  - GRAFT VERSUS HOST DISEASE [None]
  - LEUKAEMIA [None]
  - MYELODYSPLASTIC SYNDROME TRANSFORMATION [None]
